FAERS Safety Report 13039973 (Version 1)
Quarter: 2016Q4

REPORT INFORMATION
  Report Type: Spontaneous
  Country: JP (occurrence: JP)
  Receive Date: 20161219
  Receipt Date: 20161219
  Transmission Date: 20170207
  Serious: Yes (Hospitalization)
  Sender: FDA-Public Use
  Company Number: JP-VALIDUS PHARMACEUTICALS LLC-JP-2016VAL003167

PATIENT
  Age: 29 Year
  Sex: Male

DRUGS (1)
  1. FUROSEMIDE. [Suspect]
     Active Substance: FUROSEMIDE
     Indication: PRODUCT USED FOR UNKNOWN INDICATION
     Dosage: 60 DOSAGE FORM;ONCE
     Route: 048

REACTIONS (7)
  - Metabolic alkalosis [Unknown]
  - Hypokalaemia [Unknown]
  - Urine potassium increased [Unknown]
  - Dehydration [Unknown]
  - Pseudo-Bartter syndrome [Unknown]
  - Overdose [Unknown]
  - Drug abuse [Unknown]
